FAERS Safety Report 9367620 (Version 1)
Quarter: 2013Q2

REPORT INFORMATION
  Report Type: Spontaneous
  Country: US (occurrence: US)
  Receive Date: 20130625
  Receipt Date: 20130625
  Transmission Date: 20140414
  Serious: No
  Sender: FDA-Public Use
  Company Number: US-ASTELLAS-2012US006164

PATIENT
  Sex: Male
  Weight: 90 kg

DRUGS (8)
  1. VESICARE [Suspect]
     Indication: HYPERTONIC BLADDER
     Dosage: 5 MG/DAY, UID/QD
     Route: 048
     Dates: start: 20120705, end: 20120710
  2. SULFAMETHOXAZOLE AND TRIMETHOPRIM [Concomitant]
     Indication: CYSTITIS
     Dosage: UNK
     Route: 065
     Dates: start: 201206
  3. RAMIPRIL [Concomitant]
     Indication: BLOOD PRESSURE INCREASED
     Dosage: 5 MG ONCE DAILY
     Route: 048
  4. PHENAZOPYRIDINE [Concomitant]
     Indication: URINARY TRACT PAIN
     Dosage: 100 MG, TID
     Route: 048
  5. JANUVIA [Concomitant]
     Indication: DIABETES MELLITUS
     Dosage: 100 MG ONCE DAILY
     Route: 048
  6. ATORVASTATIN [Concomitant]
     Indication: BLOOD CHOLESTEROL
     Dosage: 20 MG ONCE DAILY
     Route: 048
  7. BABY ASPIRIN [Concomitant]
     Indication: PRODUCT USED FOR UNKNOWN INDICATION
     Dosage: 81 MG ONCE DAILY
     Route: 048
  8. METOPROLOL SUCCINATE [Concomitant]
     Indication: CARDIAC OPERATION
     Dosage: 100 MG ONCE DAILY
     Route: 048

REACTIONS (1)
  - Muscle spasms [Unknown]
